FAERS Safety Report 5936530-0 (Version None)
Quarter: 2008Q4

REPORT INFORMATION
  Report Type: 
  Country: None (occurrence: None)
  Receive Date: 20081030
  Receipt Date: 20081021
  Transmission Date: 20090506
  Serious: Yes (Hospitalization)
  Sender: FDA-Public Use
  Company Number: US-B.I. PHARMACEUTICALS,INC./RIDGEFIELD-2008-BP-16150BP

PATIENT
  Age: 33 Year
  Sex: Male

DRUGS (5)
  1. VIRAMUNE [Suspect]
     Indication: HIV INFECTION
     Dates: start: 20070101
  2. VIRAMUNE [Suspect]
     Indication: HERPES SIMPLEX
  3. VIRAMUNE [Suspect]
     Indication: HERPES SIMPLEX
  4. TENOFOVIR (TDV) [Concomitant]
     Indication: HERPES SIMPLEX
  5. EMTRICITABINE (FTC) [Concomitant]
     Indication: HERPES SIMPLEX

REACTIONS (6)
  - CD4 LYMPHOCYTES ABNORMAL [None]
  - CD4 LYMPHOCYTES INCREASED [None]
  - DRUG RESISTANCE [None]
  - HERPES SIMPLEX [None]
  - IMMUNE RECONSTITUTION SYNDROME [None]
  - VIRAL LOAD INCREASED [None]
